FAERS Safety Report 12784353 (Version 1)
Quarter: 2016Q3

REPORT INFORMATION
  Report Type: Spontaneous
  Country: JP (occurrence: JP)
  Receive Date: 20160927
  Receipt Date: 20160927
  Transmission Date: 20161109
  Serious: Yes (Hospitalization, Other)
  Sender: FDA-Public Use
  Company Number: JP-BEH-IGH/02/04/LIT

PATIENT
  Age: 19 Year
  Sex: Female

DRUGS (1)
  1. IMMUNE GLOBULIN INTRAVENOUS (HUMAN) [Suspect]
     Active Substance: HUMAN IMMUNOGLOBULIN G
     Indication: INFECTION
     Dosage: DAILY DOSE QUANTITY: 230, DAILY DOSE UNIT: MG/KG
     Dates: start: 20000127, end: 20000131

REACTIONS (5)
  - Pancytopenia [Unknown]
  - Coagulopathy [Unknown]
  - Somnolence [Unknown]
  - Parvovirus B19 infection [Recovering/Resolving]
  - Hepatitis fulminant [Recovering/Resolving]

NARRATIVE: CASE EVENT DATE: 2000
